FAERS Safety Report 4440053-8 (Version None)
Quarter: 2004Q3

REPORT INFORMATION
  Report Type: 
  Country: None (occurrence: None)
  Receive Date: 20040902
  Receipt Date: 20040831
  Transmission Date: 20050211
  Serious: Yes (Hospitalization)
  Sender: FDA-Public Use
  Company Number: VIS10159/2001

PATIENT
  Age: 68 Year
  Sex: Female

DRUGS (3)
  1. DYAZIDE [Suspect]
     Indication: DRUG USE FOR UNKNOWN INDICATION
     Route: 048
  2. TRICOR [Suspect]
     Indication: DRUG USE FOR UNKNOWN INDICATION
     Route: 065
  3. VISICOL [Suspect]
     Indication: DRUG USE FOR UNKNOWN INDICATION
     Route: 048
     Dates: start: 20040718

REACTIONS (15)
  - ABDOMINAL PAIN [None]
  - BACK PAIN [None]
  - BLOOD AMYLASE INCREASED [None]
  - CHOLELITHIASIS [None]
  - DRUG INTERACTION [None]
  - HAEMORRHOIDS [None]
  - HYPERTRIGLYCERIDAEMIA [None]
  - LIPASE INCREASED [None]
  - NAUSEA [None]
  - PANCREATITIS ACUTE [None]
  - PROCTALGIA [None]
  - PSEUDOCYST [None]
  - RECTAL HAEMORRHAGE [None]
  - SHOCK [None]
  - VOMITING [None]
